FAERS Safety Report 10524130 (Version 2)
Quarter: 2015Q1

REPORT INFORMATION
  Report Type: Report from Study
  Country: US (occurrence: US)
  Receive Date: 20141017
  Receipt Date: 20150213
  Transmission Date: 20150720
  Serious: Yes (Hospitalization, Other)
  Sender: FDA-Public Use
  Company Number: US-ASTELLAS-2014US014479

PATIENT
  Age: 52 Year
  Sex: Female

DRUGS (8)
  1. ACETYLCYSTEINE. [Concomitant]
     Active Substance: ACETYLCYSTEINE
     Indication: PRODUCT USED FOR UNKNOWN INDICATION
     Route: 048
  2. NALTREXONE HCL [Concomitant]
     Active Substance: NALTREXONE HYDROCHLORIDE
     Indication: PRODUCT USED FOR UNKNOWN INDICATION
     Route: 048
  3. SELENIUM [Concomitant]
     Active Substance: SELENIUM
     Indication: PRODUCT USED FOR UNKNOWN INDICATION
     Route: 048
  4. ARAID [Concomitant]
     Indication: PRODUCT USED FOR UNKNOWN INDICATION
     Dosage: UNK, UNKNOWN FREQ.
     Route: 065
  5. ERLOTINIB [Suspect]
     Active Substance: ERLOTINIB
     Indication: LUNG NEOPLASM MALIGNANT
     Route: 048
     Dates: start: 200705
  6. ASCORBIC ACID. [Concomitant]
     Active Substance: ASCORBIC ACID
     Indication: PRODUCT USED FOR UNKNOWN INDICATION
     Route: 065
  7. CHOLECALCIFEROL [Concomitant]
     Active Substance: CHOLECALCIFEROL
     Indication: PRODUCT USED FOR UNKNOWN INDICATION
     Dosage: 10000 UNIT NOT REPORTED,1 IN 1 D ,ONCE DAILY
     Route: 048
  8. MULTIVITAMIN                       /07504101/ [Concomitant]
     Active Substance: VITAMINS
     Indication: PRODUCT USED FOR UNKNOWN INDICATION
     Dosage: UNK UNK, UNKNOWN FREQ.
     Route: 065

REACTIONS (30)
  - Hiatus hernia [Unknown]
  - Adenocarcinoma [Unknown]
  - Lung neoplasm [Unknown]
  - Weight increased [Unknown]
  - Uterine leiomyoma [Unknown]
  - Vomiting [Recovered/Resolved]
  - Depression [Unknown]
  - Xeroderma [Unknown]
  - Lymphoma [Unknown]
  - Fluid overload [Recovering/Resolving]
  - Nephrolithiasis [Unknown]
  - Anxiety [Unknown]
  - Nausea [Recovering/Resolving]
  - Rash [Unknown]
  - Headache [Recovered/Resolved]
  - Aortic arteriosclerosis [Unknown]
  - Haematuria [Recovering/Resolving]
  - Rash [Recovering/Resolving]
  - Diarrhoea [Unknown]
  - Sinusitis [Unknown]
  - Paronychia [Recovering/Resolving]
  - Lymphoma [Unknown]
  - Lung neoplasm malignant [Unknown]
  - Osteopenia [Unknown]
  - Hepatic cyst [Unknown]
  - Dyspnoea exertional [Unknown]
  - Skin lesion [Unknown]
  - Chest pain [Recovering/Resolving]
  - Cough [Unknown]
  - Spinal osteoarthritis [Unknown]

NARRATIVE: CASE EVENT DATE: 20070719
